FAERS Safety Report 10524471 (Version 1)
Quarter: 2014Q4

REPORT INFORMATION
  Report Type: Report from Study
  Country: DE (occurrence: DE)
  Receive Date: 20141017
  Receipt Date: 20141017
  Transmission Date: 20150528
  Serious: Yes (Congenital Anomaly)
  Sender: FDA-Public Use
  Company Number: DE-ROXANE LABORATORIES, INC.-2014-BI-48740GD

PATIENT

DRUGS (6)
  1. AMOXICILLIN. [Suspect]
     Active Substance: AMOXICILLIN
     Indication: EXPOSURE DURING PREGNANCY
     Route: 064
  2. CITALOPRAM [Suspect]
     Active Substance: CITALOPRAM HYDROBROMIDE
     Indication: EXPOSURE DURING PREGNANCY
     Route: 064
  3. ARBUTIN [Suspect]
     Active Substance: ARBUTIN
     Indication: EXPOSURE DURING PREGNANCY
     Route: 064
  4. ACYCLOVIR. [Suspect]
     Active Substance: ACYCLOVIR
     Indication: EXPOSURE DURING PREGNANCY
     Route: 064
  5. OFLOXACIN. [Suspect]
     Active Substance: OFLOXACIN
     Indication: EXPOSURE DURING PREGNANCY
     Route: 064
  6. IBUPROFEN. [Suspect]
     Active Substance: IBUPROFEN
     Indication: EXPOSURE DURING PREGNANCY
     Route: 064

REACTIONS (5)
  - Atrial septal defect [Unknown]
  - Persistent left superior vena cava [Unknown]
  - Patent ductus arteriosus [Unknown]
  - Coarctation of the aorta [Unknown]
  - Maternal drugs affecting foetus [None]
